FAERS Safety Report 8235961 (Version 4)
Quarter: 2015Q3

REPORT INFORMATION
  Report Type: Report from Study
  Country: IL (occurrence: IL)
  Receive Date: 20111108
  Receipt Date: 20150702
  Transmission Date: 20151125
  Serious: Yes (Hospitalization, Other)
  Sender: FDA-Public Use
  Company Number: PHHY2011IL94665

PATIENT
  Age: 83 Year
  Sex: Female
  Weight: 76 kg

DRUGS (3)
  1. SANDOSTATIN LAR DEPOT [Suspect]
     Active Substance: OCTREOTIDE ACETATE
     Indication: CARCINOID TUMOUR
     Dosage: 20 MG, EVERY 14 DAYS
     Route: 030
     Dates: start: 20101019
  2. SANDOSTATIN LAR DEPOT [Suspect]
     Active Substance: OCTREOTIDE ACETATE
     Dosage: 30 MG, Q2W
     Route: 030
     Dates: start: 20110302
  3. SANDOSTATIN LAR DEPOT [Suspect]
     Active Substance: OCTREOTIDE ACETATE
     Indication: PANCREATIC NEUROENDOCRINE TUMOUR
     Dosage: 20 MG, EVERY 14 DAYS
     Route: 030
     Dates: start: 20101028

REACTIONS (8)
  - Back injury [Not Recovered/Not Resolved]
  - Head injury [Not Recovered/Not Resolved]
  - Contusion [Not Recovered/Not Resolved]
  - Myalgia [Not Recovered/Not Resolved]
  - Fall [Not Recovered/Not Resolved]
  - Anaemia [Unknown]
  - Pain [Not Recovered/Not Resolved]
  - Fall [Recovered/Resolved]

NARRATIVE: CASE EVENT DATE: 20111020
